FAERS Safety Report 10549335 (Version 3)
Quarter: 2014Q4

REPORT INFORMATION
  Report Type: Other
  Country: JP (occurrence: JP)
  Receive Date: 20141028
  Receipt Date: 20141125
  Transmission Date: 20150529
  Serious: Yes (Life-Threatening, Hospitalization, Other)
  Sender: FDA-Public Use
  Company Number: JP-BRISTOL-MYERS SQUIBB COMPANY-20469037

PATIENT
  Age: 81 Year
  Sex: Male
  Weight: 52.4 kg

DRUGS (14)
  1. DECADRON [Suspect]
     Active Substance: DEXAMETHASONE
     Indication: PREMEDICATION
     Route: 041
     Dates: start: 20130612, end: 20130612
  2. ARTIST [Concomitant]
     Active Substance: CARVEDILOL
     Indication: CORONARY ARTERIAL STENT INSERTION
  3. ADRENALINE [Suspect]
     Active Substance: EPINEPHRINE
     Indication: BLOOD PRESSURE DECREASED
     Dosage: INJ
     Route: 041
     Dates: start: 20130612, end: 20130612
  4. OLMETEC [Concomitant]
     Active Substance: OLMESARTAN MEDOXOMIL
     Indication: HYPERTENSION
  5. SOLU-MEDROL [Suspect]
     Active Substance: METHYLPREDNISOLONE SODIUM SUCCINATE
     Indication: WHEEZING
     Dosage: INF
     Route: 041
     Dates: start: 20130612, end: 20130612
  6. DECADRON [Suspect]
     Active Substance: DEXAMETHASONE
     Indication: OROPHARYNGEAL CANCER
     Route: 041
     Dates: start: 20130612, end: 20130612
  7. PLETAAL [Concomitant]
     Active Substance: CILOSTAZOL
     Indication: CORONARY ARTERIAL STENT INSERTION
  8. ERBITUX [Suspect]
     Active Substance: CETUXIMAB
     Indication: OROPHARYNGEAL CANCER
     Route: 041
     Dates: start: 20130612, end: 20130612
  9. VENA [Concomitant]
     Active Substance: DIPHENHYDRAMINE HYDROCHLORIDE
     Indication: OROPHARYNGEAL CANCER
     Dosage: TABLET
     Route: 048
     Dates: start: 20130612, end: 20130612
  10. SIGMART [Concomitant]
     Active Substance: NICORANDIL
     Indication: CORONARY ARTERIAL STENT INSERTION
  11. ANPLAG [Concomitant]
     Active Substance: SARPOGRELATE
     Indication: CORONARY ARTERIAL STENT INSERTION
  12. ITOROL [Concomitant]
     Active Substance: ISOSORBIDE MONONITRATE
     Indication: CORONARY ARTERIAL STENT INSERTION
  13. NORVASC [Concomitant]
     Active Substance: AMLODIPINE BESYLATE
     Indication: HYPERTENSION
  14. CARDENALIN [Concomitant]
     Active Substance: DOXAZOSIN MESYLATE
     Indication: HYPERTENSION

REACTIONS (2)
  - Gastrointestinal haemorrhage [Recovered/Resolved]
  - Anaphylactic shock [Recovered/Resolved]

NARRATIVE: CASE EVENT DATE: 20130612
